FAERS Safety Report 4969140-2 (Version None)
Quarter: 2006Q2

REPORT INFORMATION
  Report Type: 
  Country: None (occurrence: None)
  Receive Date: 20060411
  Receipt Date: 20050526
  Transmission Date: 20061013
  Serious: No
  Sender: FDA-Public Use
  Company Number: US-BRISTOL-MYERS SQUIBB COMPANY-12983177

PATIENT
  Sex: Male

DRUGS (3)
  1. PARAPLATIN [Suspect]
     Route: 042
  2. TAXOL [Concomitant]
  3. RADIATION THERAPY [Concomitant]

REACTIONS (3)
  - ASTHENIA [None]
  - BALANCE DISORDER [None]
  - NAUSEA [None]
